FAERS Safety Report 4356838-2 (Version None)
Quarter: 2004Q2

REPORT INFORMATION
  Report Type: 
  Country: None (occurrence: None)
  Receive Date: 20040507
  Receipt Date: 20040427
  Transmission Date: 20050107
  Serious: No
  Sender: FDA-Public Use
  Company Number: DE-SHR-03-014921

PATIENT
  Sex: Female
  Weight: 95 kg

DRUGS (4)
  1. BETAFERON (INTERFERON BETA - 1B) INJECTION [Suspect]
     Indication: MULTIPLE SCLEROSIS
     Dosage: 8 MIU, SUBCUTANEOUS
     Route: 058
     Dates: start: 20020901, end: 20031101
  2. IMUREK /GFR/ (AZATHIOPRINE) [Suspect]
     Indication: MULTIPLE SCLEROSIS
     Dosage: 150 MG, ORAL
     Route: 048
     Dates: start: 19990101, end: 20020801
  3. FUROSEMIDE [Concomitant]
  4. KELTICAN N (URIDINE TRIPHOSPHATE SODIUM) [Concomitant]

REACTIONS (3)
  - BREAST CANCER FEMALE [None]
  - HYPERTROPHY BREAST [None]
  - WEIGHT INCREASED [None]
